FAERS Safety Report 7477102-9 (Version None)
Quarter: 2011Q2

REPORT INFORMATION
  Report Type: 
  Country: None (occurrence: None)
  Receive Date: 20110512
  Receipt Date: 20110105
  Transmission Date: 20111010
  Serious: No
  Sender: FDA-Public Use
  Company Number: US-NOVEN-11US001537

PATIENT
  Age: 10 Year
  Sex: Male

DRUGS (1)
  1. DAYTRANA [Suspect]
     Dosage: 15 MG, 1X/DAY:QD
     Route: 062
     Dates: start: 20100927

REACTIONS (2)
  - RESTLESSNESS [None]
  - DRUG INEFFECTIVE [None]
